FAERS Safety Report 6498185-9 (Version None)
Quarter: 2009Q4

REPORT INFORMATION
  Report Type: 
  Country: None (occurrence: None)
  Receive Date: 20091215
  Receipt Date: 20091203
  Transmission Date: 20100525
  Serious: Yes (Death, Hospitalization)
  Sender: FDA-Public Use
  Company Number: FR-ELI_LILLY_AND_COMPANY-FR200909003448

PATIENT
  Age: 64 Year
  Sex: Female

DRUGS (6)
  1. ZYPREXA [Suspect]
     Indication: MAJOR DEPRESSION
     Dosage: 5 MG, 2/D
     Route: 048
     Dates: start: 20090813, end: 20090817
  2. NORSET [Concomitant]
     Indication: MAJOR DEPRESSION
     Dosage: 15 MG, 2/D
     Route: 048
     Dates: start: 20090813, end: 20090817
  3. GABACET [Concomitant]
     Indication: ANGIOPATHY
     Route: 048
     Dates: start: 20090810, end: 20090817
  4. DEPAMIDE [Concomitant]
     Dosage: 300 MG, 3/D
     Route: 048
     Dates: start: 19820711, end: 20090817
  5. EQUANIL [Concomitant]
     Indication: INSOMNIA
     Dosage: 400 MG, EACH EVENING
     Route: 048
     Dates: start: 20090817, end: 20090817
  6. IMOVANE [Concomitant]
     Indication: INSOMNIA
     Dosage: UNK, AS NEEDED
     Route: 048
     Dates: start: 20090817, end: 20090817

REACTIONS (11)
  - AUTONOMIC NERVOUS SYSTEM IMBALANCE [None]
  - BLOOD CREATININE INCREASED [None]
  - BLOOD GLUCOSE INCREASED [None]
  - BLOOD PRESSURE INCREASED [None]
  - BLOOD UREA INCREASED [None]
  - DEATH [None]
  - DEHYDRATION [None]
  - HEPATIC FUNCTION ABNORMAL [None]
  - HYPERTHERMIA [None]
  - TACHYCARDIA [None]
  - WHITE BLOOD CELL COUNT DECREASED [None]
